FAERS Safety Report 17329791 (Version 5)
Quarter: 2020Q3

REPORT INFORMATION
  Report Type: Report from Study
  Country: CA (occurrence: CA)
  Receive Date: 20200128
  Receipt Date: 20200805
  Transmission Date: 20201102
  Serious: Yes (Hospitalization)
  Sender: FDA-Public Use
  Company Number: CA-JNJFOC-20191029186

PATIENT
  Age: 33 Year
  Sex: Male
  Weight: 106.59 kg

DRUGS (3)
  1. STELARA [Suspect]
     Active Substance: USTEKINUMAB
     Indication: CROHN^S DISEASE
     Route: 058
  2. STELARA [Suspect]
     Active Substance: USTEKINUMAB
     Route: 058
     Dates: start: 20200407
  3. STELARA [Suspect]
     Active Substance: USTEKINUMAB
     Route: 058

REACTIONS (5)
  - Tooth extraction [Recovered/Resolved]
  - Drug ineffective [Unknown]
  - Depression [Unknown]
  - Crohn^s disease [Not Recovered/Not Resolved]
  - Herpes zoster [Recovering/Resolving]
